FAERS Safety Report 8152676-3 (Version None)
Quarter: 2012Q1

REPORT INFORMATION
  Report Type: 
  Country: None (occurrence: None)
  Receive Date: 20120221
  Receipt Date: 20120208
  Transmission Date: 20120608
  Serious: Yes (Other)
  Sender: FDA-Public Use
  Company Number: BE-GENZYME-CERZ-1002337

PATIENT
  Sex: Male
  Weight: 70 kg

DRUGS (2)
  1. CEREZYME [Suspect]
     Dosage: 60 U/KG, Q2W
     Route: 042
     Dates: start: 19940101
  2. CEREZYME [Suspect]
     Indication: GAUCHER'S DISEASE
     Dosage: 23 U/KG, QW
     Route: 042

REACTIONS (1)
  - BONE PAIN [None]
